FAERS Safety Report 18389702 (Version 2)
Quarter: 2022Q1

REPORT INFORMATION
  Report Type: Report from Study
  Country: GB (occurrence: GB)
  Receive Date: 20201015
  Receipt Date: 20220223
  Transmission Date: 20220423
  Serious: Yes (Death, Hospitalization, Other)
  Sender: FDA-Public Use
  Company Number: GB-ROCHE-2081606

PATIENT
  Age: 52 Year
  Sex: Female

DRUGS (37)
  1. TRASTUZUMAB [Suspect]
     Active Substance: TRASTUZUMAB
     Indication: Breast cancer metastatic
     Dosage: 600 MILLIGRAM
     Route: 042
     Dates: start: 20150924, end: 20150924
  2. TRASTUZUMAB [Suspect]
     Active Substance: TRASTUZUMAB
     Dosage: 450 MILLIGRAM, Q3W
     Route: 042
     Dates: start: 20151016, end: 20170324
  3. DOCETAXEL [Suspect]
     Active Substance: DOCETAXEL
     Indication: Breast cancer metastatic
     Dosage: 132 MILLIGRAM
     Route: 042
     Dates: start: 20150925, end: 20151016
  4. DOCETAXEL [Suspect]
     Active Substance: DOCETAXEL
     Dosage: 108 MILLIGRAM, Q3W
     Route: 042
     Dates: start: 20151016, end: 20160108
  5. CAPECITABINE [Suspect]
     Active Substance: CAPECITABINE
     Indication: Product used for unknown indication
     Dosage: 1500 MILLIGRAM
     Route: 048
     Dates: start: 20171128, end: 20171219
  6. PERTUZUMAB [Suspect]
     Active Substance: PERTUZUMAB
     Indication: Breast cancer metastatic
     Dosage: 840 MILLIGRAM, QD
     Route: 042
     Dates: start: 20150924, end: 20150924
  7. PERTUZUMAB [Suspect]
     Active Substance: PERTUZUMAB
     Dosage: 420 MILLIGRAM, Q3W
     Route: 042
     Dates: start: 20151016, end: 20170324
  8. NERATINIB [Suspect]
     Active Substance: NERATINIB
     Indication: HER2 positive breast cancer
     Dosage: 240 MILLIGRAM, QD
     Route: 048
     Dates: start: 20180220, end: 20180717
  9. ATEZOLIZUMAB [Suspect]
     Active Substance: ATEZOLIZUMAB
     Indication: Breast cancer metastatic
     Dosage: 1200 MILLIGRAM, Q3W
     Route: 042
     Dates: start: 20170510, end: 20180628
  10. ADO-TRASTUZUMAB EMTANSINE [Suspect]
     Active Substance: ADO-TRASTUZUMAB EMTANSINE
     Indication: Breast cancer metastatic
     Dosage: 260 MILLIGRAM, Q3W
     Route: 042
     Dates: start: 20170510, end: 20170628
  11. SENNOSIDE B [Concomitant]
     Active Substance: SENNOSIDE B
     Indication: Constipation
     Dosage: 15 MILLIGRAM, QD
     Route: 048
     Dates: start: 20170706, end: 201707
  12. BUDESONIDE [Concomitant]
     Active Substance: BUDESONIDE
     Dosage: 9 MILLIGRAM, QD
     Route: 048
     Dates: start: 20180220, end: 20180320
  13. MACROGOL COMP [Concomitant]
     Indication: Constipation
     Dosage: UNK, QD (1 OTHER)
     Route: 048
     Dates: start: 20170706, end: 20190425
  14. DOMPERIDONE [Concomitant]
     Active Substance: DOMPERIDONE
     Indication: Constipation
     Dosage: 10 MILLIGRAM, TID
     Route: 048
     Dates: start: 20170705, end: 20190129
  15. INSULINA HUMALOG [Concomitant]
     Dosage: UNK UNK, TID (16 U)
     Route: 058
     Dates: end: 20190425
  16. GLYCERIN [Concomitant]
     Active Substance: GLYCERIN
     Indication: Constipation
     Dosage: 4 GRAM
     Route: 054
     Dates: start: 20180511, end: 201805
  17. LACTULOSE [Concomitant]
     Active Substance: LACTULOSE
     Indication: Constipation
     Dosage: 10 MILLILITER, BID
     Route: 048
     Dates: start: 20170705, end: 2017
  18. CITALOPRAM [Concomitant]
     Active Substance: CITALOPRAM HYDROBROMIDE
     Dosage: 20 MILLIGRAM, QD
     Route: 048
     Dates: end: 2017
  19. BUTYLSCOPOLAMINE [Concomitant]
     Active Substance: BUTYLSCOPOLAMINE
     Dosage: 20 MILLIGRAM, QD
     Route: 048
     Dates: start: 20171219, end: 2018
  20. HALOPERIDOL [Concomitant]
     Active Substance: HALOPERIDOL
     Indication: Constipation
     Dosage: 1.5 MILLIGRAM, BID
     Route: 048
     Dates: start: 20170706, end: 2017
  21. METFORMIN [Concomitant]
     Active Substance: METFORMIN HYDROCHLORIDE
     Dosage: 500 MILLIGRAM, BID
     Route: 048
     Dates: end: 20190425
  22. ONDANSETRON [Concomitant]
     Active Substance: ONDANSETRON
     Indication: Constipation
     Dosage: 4 MILLIGRAM, BID
     Route: 048
     Dates: start: 20170718, end: 2017
  23. DOCUSATE SODIUM [Concomitant]
     Active Substance: DOCUSATE SODIUM
     Indication: Constipation
     Dosage: 200 MILLIGRAM, BID
     Route: 048
     Dates: start: 20170706, end: 2018
  24. ZOPICLONE [Concomitant]
     Active Substance: ZOPICLONE
     Indication: Insomnia
     Dosage: 3.75 MILLIGRAM, QD
     Route: 048
     Dates: start: 20170812, end: 20170822
  25. DULOXETINE [Concomitant]
     Active Substance: DULOXETINE
     Indication: Anxiety
     Dosage: 60 MILLIGRAM
     Route: 048
     Dates: start: 20181115, end: 20190425
  26. ANISEED [Concomitant]
     Indication: Gastrooesophageal reflux disease
     Dosage: 10 MILLILITER
     Route: 048
     Dates: start: 201707, end: 20190425
  27. DIAZEPAM [Concomitant]
     Active Substance: DIAZEPAM
     Indication: Anxiety
     Dosage: UNK, TID
     Route: 048
     Dates: start: 20180515, end: 20190425
  28. LANSOPRAZOLE [Concomitant]
     Active Substance: LANSOPRAZOLE
     Dosage: 30 MILLIGRAM, QD
     Route: 048
     Dates: end: 2017
  29. OMEPRAZOLE [Concomitant]
     Active Substance: OMEPRAZOLE
     Indication: Constipation
     Dosage: 20 MILLIGRAM, BID
     Route: 048
     Dates: start: 20170710, end: 20190425
  30. GABAPENTIN [Concomitant]
     Active Substance: GABAPENTIN
     Indication: Neuropathy peripheral
     Dosage: 100 MILLIGRAM, TID
     Route: 048
     Dates: start: 20171219, end: 20190425
  31. LEVEMIR [Concomitant]
     Active Substance: INSULIN DETEMIR
     Dosage: UNK, QD (38 U)
     Route: 058
     Dates: end: 20190425
  32. RANITIDINE [Concomitant]
     Active Substance: RANITIDINE
     Indication: Constipation
     Dosage: 150 MILLIGRAM, BID
     Route: 048
     Dates: start: 20170706, end: 2018
  33. AMITRIPTYLINE [Concomitant]
     Active Substance: AMITRIPTYLINE
     Indication: Neuropathy peripheral
     Dosage: 10 MILLIGRAM
     Route: 048
     Dates: start: 201608, end: 2017
  34. DEXAMETHASONE [Concomitant]
     Active Substance: DEXAMETHASONE
     Dosage: 4 MILLIGRAM, QD
     Route: 048
     Dates: start: 20181030, end: 20181113
  35. DEXAMETHASONE [Concomitant]
     Active Substance: DEXAMETHASONE
     Dosage: 6 MILLIGRAM
     Route: 048
     Dates: start: 20181030, end: 20190123
  36. DEXAMETHASONE [Concomitant]
     Active Substance: DEXAMETHASONE
     Dosage: 2 MILLIGRAM
     Route: 048
     Dates: start: 20181228, end: 201901
  37. DEXAMETHASONE [Concomitant]
     Active Substance: DEXAMETHASONE
     Dosage: 4 MILLIGRAM, BID
     Route: 048
     Dates: start: 20181023, end: 20181028

REACTIONS (9)
  - Death [Fatal]
  - Bundle branch block left [Recovered/Resolved]
  - Neuropathy peripheral [Recovered/Resolved]
  - Constipation [Recovered/Resolved]
  - Cough [Recovered/Resolved]
  - Hot flush [Recovered/Resolved]
  - Hyperglycaemia [Recovered/Resolved]
  - Aphonia [Recovered/Resolved]
  - Upper respiratory tract infection [Recovered/Resolved]

NARRATIVE: CASE EVENT DATE: 20160301
